FAERS Safety Report 4559454-2 (Version None)
Quarter: 2005Q1

REPORT INFORMATION
  Report Type: 
  Country: None (occurrence: None)
  Receive Date: 20050119
  Receipt Date: 20050105
  Transmission Date: 20050727
  Serious: Yes (Hospitalization)
  Sender: FDA-Public Use
  Company Number: 430001N05FRA

PATIENT
  Age: 58 Year
  Sex: Female

DRUGS (6)
  1. MITOXANTRONE [Suspect]
     Indication: MULTIPLE SCLEROSIS
     Dosage: 18.84 MG, 1 IN 1 CYCLE, INTRAVENOUS (NOT OTHERWISE SPECIFIED)
     Dates: start: 20041126, end: 20041126
  2. LORAZEPAM [Concomitant]
  3. CITALOPRAM HYDROBROMIDE [Concomitant]
  4. ESOMEPRAZOLE [Concomitant]
  5. MACROGOL [Concomitant]
  6. ZOPICLONE [Concomitant]

REACTIONS (2)
  - ESCHERICHIA URINARY TRACT INFECTION [None]
  - NEUTROPENIA [None]
